FAERS Safety Report 6771871-9 (Version None)
Quarter: 2010Q2

REPORT INFORMATION
  Report Type: 
  Country: None (occurrence: None)
  Receive Date: 20100616
  Receipt Date: 20090720
  Transmission Date: 20101027
  Serious: No
  Sender: FDA-Public Use
  Company Number: US-ASTRAZENECA-2009UW20387

PATIENT
  Age: 85 Year
  Sex: Female

DRUGS (1)
  1. ENTOCORT EC [Suspect]
     Indication: CROHN'S DISEASE
     Route: 048

REACTIONS (4)
  - CONTUSION [None]
  - CUSHINGOID [None]
  - OEDEMA PERIPHERAL [None]
  - WEIGHT INCREASED [None]
